FAERS Safety Report 24328647 (Version 1)
Quarter: 2024Q3

REPORT INFORMATION
  Report Type: Report from Study
  Country: KR (occurrence: KR)
  Receive Date: 20240917
  Receipt Date: 20240917
  Transmission Date: 20241016
  Serious: Yes (Hospitalization)
  Sender: JOHNSON AND JOHNSON
  Company Number: KR-JNJFOC-20240513474

PATIENT
  Age: 82 Year
  Sex: Male
  Weight: 71.8 kg

DRUGS (12)
  1. LAZERTINIB [Suspect]
     Active Substance: LAZERTINIB
     Indication: Non-small cell lung cancer
     Route: 048
     Dates: start: 20240312, end: 20240424
  2. LAZERTINIB [Suspect]
     Active Substance: LAZERTINIB
     Route: 048
     Dates: start: 20240509
  3. MANNITOL 20% A.N.B [Concomitant]
     Indication: Diuretic therapy
     Route: 042
     Dates: start: 20240424, end: 20240424
  4. CALCIUM CHLORIDE [Concomitant]
     Active Substance: CALCIUM CHLORIDE
     Indication: Mineral supplementation
     Route: 042
     Dates: start: 20240424, end: 20240424
  5. OLDECA [Concomitant]
     Indication: Hypertension
     Route: 048
     Dates: start: 20240425
  6. DOXAZOSIN MESYLATE [Concomitant]
     Active Substance: DOXAZOSIN MESYLATE
     Indication: Hypertension
     Route: 048
     Dates: start: 20240425
  7. GEMIGLIPTIN TARTRATE [Concomitant]
     Indication: Diabetes mellitus
     Route: 048
     Dates: start: 20240425
  8. TASNA [Concomitant]
     Indication: Antacid therapy
     Route: 048
     Dates: start: 20240425
  9. FERROUS SULFATE [Concomitant]
     Active Substance: FERROUS SULFATE
     Indication: Iron deficiency anaemia
     Route: 048
     Dates: start: 20240425
  10. HYGROTON [Concomitant]
     Active Substance: CHLORTHALIDONE
     Indication: Diuretic therapy
     Route: 048
     Dates: start: 20240425
  11. KANARB [Concomitant]
     Indication: Hypertension
     Route: 048
     Dates: start: 20240425
  12. NORVASC [Concomitant]
     Active Substance: AMLODIPINE BESYLATE
     Indication: Hypertension
     Route: 048
     Dates: start: 20240426

REACTIONS (1)
  - Hyperkalaemia [Recovered/Resolved]

NARRATIVE: CASE EVENT DATE: 20240424
